FAERS Safety Report 4656458-6 (Version None)
Quarter: 2005Q2

REPORT INFORMATION
  Report Type: 
  Country: None (occurrence: None)
  Receive Date: 20050509
  Receipt Date: 20050428
  Transmission Date: 20051028
  Serious: Yes (Death, Hospitalization)
  Sender: FDA-Public Use
  Company Number: US-AMGEN-US129995

PATIENT
  Age: 53 Year
  Sex: Female

DRUGS (5)
  1. SENSIPAR [Suspect]
     Indication: HYPERPARATHYROIDISM SECONDARY
     Route: 048
     Dates: start: 20050105
  2. CLONIDINE [Concomitant]
  3. METOPROLOL [Concomitant]
  4. MINOXIDIL [Concomitant]
  5. RENAGEL [Concomitant]

REACTIONS (5)
  - HAEMATOCHEZIA [None]
  - HEPATIC FAILURE [None]
  - HYPOCALCAEMIA [None]
  - INFECTION [None]
  - JAUNDICE [None]
